FAERS Safety Report 15277472 (Version 1)
Quarter: 2018Q3

REPORT INFORMATION
  Report Type: Report from Study
  Country: BR (occurrence: BR)
  Receive Date: 20180814
  Receipt Date: 20180814
  Transmission Date: 20181010
  Serious: Yes (Other)
  Sender: FDA-Public Use
  Company Number: PHHY2018BR042475

PATIENT
  Sex: Female
  Weight: 70 kg

DRUGS (12)
  1. PROFENID [Concomitant]
     Active Substance: KETOPROFEN
     Indication: ARTHRALGIA
     Dosage: 200 MG, UNK
     Route: 065
  2. COSENTYX [Suspect]
     Active Substance: SECUKINUMAB
     Dosage: 150 MG/ML, UNK
     Route: 058
     Dates: start: 20180719
  3. RESTIVA [Concomitant]
     Active Substance: BUPRENORPHINE
     Indication: TENDON DISORDER
     Dosage: 1 PATCH (10 MG), QW
     Route: 065
  4. COSENTYX [Suspect]
     Active Substance: SECUKINUMAB
     Indication: PSORIATIC ARTHROPATHY
     Dosage: 300 MG, QW
     Route: 058
     Dates: start: 20180322, end: 20180419
  5. RESTIVA [Concomitant]
     Active Substance: BUPRENORPHINE
     Indication: SACROILIITIS
  6. GABAPENTIN. [Concomitant]
     Active Substance: GABAPENTIN
     Indication: NEURALGIA
     Dosage: 300 MG, Q12H
     Route: 048
  7. RESTIVA [Concomitant]
     Active Substance: BUPRENORPHINE
     Indication: TENOSYNOVITIS
  8. TOPERMA [Concomitant]
     Active Substance: LIDOCAINE
     Indication: PRODUCT USED FOR UNKNOWN INDICATION
     Route: 065
  9. FLUOXETINE [Concomitant]
     Active Substance: FLUOXETINE HYDROCHLORIDE
     Indication: PAIN
     Dosage: 20 MG, QD
  10. DIAZEPAM. [Concomitant]
     Active Substance: DIAZEPAM
     Indication: MENIERE^S DISEASE
  11. COSENTYX [Suspect]
     Active Substance: SECUKINUMAB
     Dosage: 300 MG, QW
     Route: 058
     Dates: start: 20180427
  12. ROSUVASTATIN. [Concomitant]
     Active Substance: ROSUVASTATIN
     Indication: LOW DENSITY LIPOPROTEIN INCREASED
     Dosage: 10 MG, UNK
     Route: 048

REACTIONS (13)
  - Diarrhoea [Unknown]
  - Oropharyngeal pain [Unknown]
  - Oral candidiasis [Unknown]
  - Shock [Unknown]
  - Feeling abnormal [Recovered/Resolved]
  - Decreased immune responsiveness [Unknown]
  - Headache [Unknown]
  - Cough [Not Recovered/Not Resolved]
  - Dyspnoea [Unknown]
  - Influenza [Recovered/Resolved]
  - Vulvovaginal candidiasis [Unknown]
  - Feeling abnormal [Unknown]
  - Anal candidiasis [Unknown]
